FAERS Safety Report 5776675-1 (Version None)
Quarter: 2008Q2

REPORT INFORMATION
  Report Type: 
  Country: None (occurrence: None)
  Receive Date: 20080618
  Receipt Date: 20080616
  Transmission Date: 20081010
  Serious: Yes (Other)
  Sender: FDA-Public Use
  Company Number: NL-BAYER-200614647GDS

PATIENT
  Age: 59 Year
  Sex: Female

DRUGS (2)
  1. AVELOX [Suspect]
     Indication: PYREXIA
     Route: 065
  2. IBUROFEN [Concomitant]
     Indication: DRUG USE FOR UNKNOWN INDICATION
     Route: 065

REACTIONS (6)
  - EYE PAIN [None]
  - EYELID DISORDER [None]
  - IRIS HYPOPIGMENTATION [None]
  - MYDRIASIS [None]
  - PHOTOPHOBIA [None]
  - VISION BLURRED [None]
